FAERS Safety Report 10777387 (Version 1)
Quarter: 2015Q1

REPORT INFORMATION
  Report Type: Report from Study
  Country: NL (occurrence: NL)
  Receive Date: 20150209
  Receipt Date: 20150209
  Transmission Date: 20150721
  Serious: Yes (Hospitalization)
  Sender: FDA-Public Use
  Company Number: NL-TEVA-538779ISR

PATIENT
  Age: 60 Year
  Sex: Female

DRUGS (8)
  1. PACLITAXEL. [Suspect]
     Active Substance: PACLITAXEL
     Indication: BREAST CANCER METASTATIC
     Dosage: 159 MG DAILY DOSE; 90 MG/M2 IV ON DAYS 1, 8 AND 15 EVERY 28 DAYS
     Route: 042
     Dates: start: 20141128, end: 20141128
  2. FENTANYL. [Concomitant]
     Active Substance: FENTANYL
     Dates: start: 20141120
  3. CALCIUM/COLECALCIFEROL [Concomitant]
     Active Substance: CALCIUM\CHOLECALCIFEROL
     Dosage: 500/400
  4. IBUPROFEN. [Concomitant]
     Active Substance: IBUPROFEN
     Dosage: 1200 MILLIGRAM DAILY;
     Dates: start: 20141120
  5. BEVACIZUMAB [Suspect]
     Active Substance: BEVACIZUMAB
     Indication: BREAST CANCER METASTATIC
     Dosage: 689 MG DAILY DOSE; 10 MG/KG IV ON DAYS 1 AND 15 EVERY 28 DAYS
     Route: 042
     Dates: start: 20141128, end: 20141128
  6. OMEPRAZOL [Concomitant]
     Active Substance: OMEPRAZOLE
     Dosage: 40 MILLIGRAM DAILY;
     Dates: start: 20141120
  7. MYOCET [Suspect]
     Active Substance: DOXORUBICIN
     Indication: BREAST CANCER METASTATIC
     Dosage: 0 MILLIGRAM DAILY;
  8. DENOSUMAB [Concomitant]
     Active Substance: DENOSUMAB
     Dosage: 70 MILLIGRAM DAILY;
     Dates: start: 20141120

REACTIONS (4)
  - Lung infection [Unknown]
  - Pyrexia [Recovered/Resolved]
  - Herpes zoster [Unknown]
  - Leukopenia [Unknown]

NARRATIVE: CASE EVENT DATE: 20141201
